FAERS Safety Report 24584267 (Version 2)
Quarter: 2024Q4

REPORT INFORMATION
  Report Type: Spontaneous
  Country: CN (occurrence: CN)
  Receive Date: 20241106
  Receipt Date: 20241108
  Transmission Date: 20250114
  Serious: Yes (Other)
  Sender: MERCK
  Company Number: CN-009507513-2411CHN000054

PATIENT
  Age: 51 Year
  Sex: Female

DRUGS (4)
  1. PEMBROLIZUMAB [Suspect]
     Active Substance: PEMBROLIZUMAB
     Indication: Malignant melanoma stage IV
     Dosage: 200 MG, D0, 4 CYCLES
     Dates: start: 2022, end: 202204
  2. PEMBROLIZUMAB [Suspect]
     Active Substance: PEMBROLIZUMAB
     Indication: Malignant neoplasm of unknown primary site
     Dosage: 200 MG, D0, 2 CYCLES
     Dates: start: 202210, end: 202211
  3. DACARBAZINE [Suspect]
     Active Substance: DACARBAZINE
     Indication: Malignant melanoma stage IV
     Dosage: 385 MG, D1-5, 4 CYCLES
     Route: 048
     Dates: start: 2022, end: 202204
  4. DACARBAZINE [Suspect]
     Active Substance: DACARBAZINE
     Indication: Malignant neoplasm of unknown primary site

REACTIONS (1)
  - Myelosuppression [Recovered/Resolved]

NARRATIVE: CASE EVENT DATE: 20220401
